FAERS Safety Report 9698129 (Version 1)
Quarter: 2013Q4

REPORT INFORMATION
  Report Type: Spontaneous
  Country: ES (occurrence: ES)
  Receive Date: 20131120
  Receipt Date: 20131120
  Transmission Date: 20140711
  Serious: Yes (Hospitalization)
  Sender: FDA-Public Use
  Company Number: ES-SHIRE-ALL1-2013-07822

PATIENT
  Age: 45 Year
  Sex: Male

DRUGS (2)
  1. VPRIV [Suspect]
     Indication: GAUCHER^S DISEASE
     Dosage: 45 IU/KG 1X 2WEEKS
     Route: 041
  2. ACIRIL                             /00109202/ [Concomitant]
     Indication: PRODUCT USED FOR UNKNOWN INDICATION
     Dosage: 75 MG, OTHERTWICE A MONTH)
     Route: 065

REACTIONS (2)
  - Wrist fracture [Recovering/Resolving]
  - Road traffic accident [Recovered/Resolved]
